FAERS Safety Report 7231026-0 (Version None)
Quarter: 2011Q1

REPORT INFORMATION
  Report Type: 
  Country: None (occurrence: None)
  Receive Date: 20110118
  Receipt Date: 20110106
  Transmission Date: 20110831
  Serious: Yes (Hospitalization)
  Sender: FDA-Public Use
  Company Number: DE-JNJFOC-20110104381

PATIENT
  Age: 26 Year
  Sex: Female
  Weight: 67 kg

DRUGS (3)
  1. PALEXIA RETARD [Suspect]
     Indication: BACK PAIN
     Dosage: DOSE: 50MG TABLETS, 2 IN 1 DAY.
     Route: 048
  2. DICLOFENAC SODIUM [Concomitant]
     Route: 065
  3. PANTOZOL [Concomitant]
     Route: 065

REACTIONS (1)
  - LIVIDITY [None]
